FAERS Safety Report 10148196 (Version 3)
Quarter: 2014Q2

REPORT INFORMATION
  Report Type: Spontaneous
  Country: US (occurrence: US)
  Receive Date: 20140501
  Receipt Date: 20140627
  Transmission Date: 20141212
  Serious: No
  Sender: FDA-Public Use
  Company Number: US-AMGEN-USASP2014024952

PATIENT
  Age: 62 Year
  Sex: Female

DRUGS (6)
  1. ENBREL [Suspect]
     Indication: RHEUMATOID ARTHRITIS
     Dosage: 50 MG, QWK
     Route: 065
     Dates: start: 20140327, end: 201406
  2. METHOTREXATE [Concomitant]
     Dosage: 15 MG, QWK
  3. CELEXA                             /00582602/ [Concomitant]
     Dosage: UNK
  4. FOLIC ACID [Concomitant]
     Dosage: UNK
  5. VICODIN [Concomitant]
     Dosage: UNK
  6. ARAVA [Concomitant]
     Dosage: UNK

REACTIONS (9)
  - Micturition urgency [Not Recovered/Not Resolved]
  - Vulvovaginal pruritus [Not Recovered/Not Resolved]
  - Vaginal haemorrhage [Not Recovered/Not Resolved]
  - Muscle spasms [Not Recovered/Not Resolved]
  - Blood glucose abnormal [Unknown]
  - Urticaria [Unknown]
  - Injection site urticaria [Not Recovered/Not Resolved]
  - Injection site reaction [Unknown]
  - Injection site discolouration [Unknown]
